FAERS Safety Report 7828852-3 (Version None)
Quarter: 2011Q4

REPORT INFORMATION
  Report Type: 
  Country: None (occurrence: None)
  Receive Date: 20111020
  Receipt Date: 20111013
  Transmission Date: 20120403
  Serious: Yes (Other)
  Sender: FDA-Public Use
  Company Number: CHPA2011US14098

PATIENT
  Age: 75 Year
  Sex: Female

DRUGS (3)
  1. PERDIEM OVERNIGHT RELIEF PILLS [Suspect]
     Indication: IRRITABLE BOWEL SYNDROME
     Dosage: 1 DF, QD
     Route: 048
  2. ACTOS [Suspect]
     Indication: DIABETES MELLITUS
     Dosage: UNK, QD
     Route: 048
  3. METFORMIN HCL [Suspect]
     Indication: DIABETES MELLITUS
     Dosage: 2 MG, BID
     Route: 048

REACTIONS (8)
  - WEIGHT DECREASED [None]
  - ASTHENIA [None]
  - DIABETES MELLITUS [None]
  - LOSS OF CONSCIOUSNESS [None]
  - THERAPEUTIC RESPONSE UNEXPECTED [None]
  - BLOOD GLUCOSE DECREASED [None]
  - INCORRECT DRUG ADMINISTRATION DURATION [None]
  - OFF LABEL USE [None]
